FAERS Safety Report 16029281 (Version 1)
Quarter: 2019Q1

REPORT INFORMATION
  Report Type: Spontaneous
  Country: US (occurrence: US)
  Receive Date: 20190304
  Receipt Date: 20190304
  Transmission Date: 20190418
  Serious: Yes (Life-Threatening, Hospitalization, Other)
  Sender: FDA-Public Use
  Company Number: US-SA-2017SA195411

PATIENT
  Age: 45 Year
  Sex: Male

DRUGS (1)
  1. IVERMECTIN. [Suspect]
     Active Substance: IVERMECTIN
     Indication: LICE INFESTATION
     Dosage: 15 MG,UNK
     Route: 065

REACTIONS (7)
  - Rash maculo-papular [Recovered/Resolved]
  - Oral mucosal blistering [Recovered/Resolved]
  - Generalised erythema [Recovered/Resolved]
  - Toxic epidermal necrolysis [Recovered/Resolved]
  - Conjunctivitis [Recovered/Resolved]
  - Rash erythematous [Recovered/Resolved]
  - Dermatitis [Recovered/Resolved]
